FAERS Safety Report 7121511-4 (Version None)
Quarter: 2010Q4

REPORT INFORMATION
  Report Type: 
  Country: None (occurrence: None)
  Receive Date: 20101119
  Receipt Date: 20101119
  Transmission Date: 20110411
  Serious: Yes (Hospitalization)
  Sender: FDA-Public Use
  Company Number: None

PATIENT
  Age: 56 Year
  Sex: Male
  Weight: 53.5244 kg

DRUGS (1)
  1. ROCURONIUM BROMIDE [Suspect]
     Indication: SURGERY
     Dosage: 50 MG ONCE IV
     Route: 042
     Dates: start: 20100910, end: 20100910

REACTIONS (2)
  - RENAL FAILURE ACUTE [None]
  - RHABDOMYOLYSIS [None]
